FAERS Safety Report 16838394 (Version 1)
Quarter: 2019Q3

REPORT INFORMATION
  Report Type: Spontaneous
  Country: US (occurrence: US)
  Receive Date: 20190923
  Receipt Date: 20190923
  Transmission Date: 20191005
  Serious: Yes (Hospitalization, Other)
  Sender: FDA-Public Use
  Company Number: US-CATALYST PHARMACEUTICALS, INC-2019CAT00404

PATIENT
  Age: 41 Year
  Sex: Female
  Weight: 70.3 kg

DRUGS (7)
  1. FIRDAPSE [Suspect]
     Active Substance: AMIFAMPRIDINE
     Dosage: 5 MG
     Route: 048
     Dates: start: 2019, end: 2019
  2. FIRDAPSE [Suspect]
     Active Substance: AMIFAMPRIDINE
     Dosage: 15 MG, 4X/DAY
     Route: 048
     Dates: start: 2019
  3. FIRDAPSE [Suspect]
     Active Substance: AMIFAMPRIDINE
     Indication: MYASTHENIC SYNDROME
     Dosage: 15 MG, 4X/DAY
     Route: 048
     Dates: start: 201706
  4. FIRDAPSE [Suspect]
     Active Substance: AMIFAMPRIDINE
     Dosage: 10 MG
     Route: 048
     Dates: start: 2019, end: 2019
  5. FIRDAPSE [Suspect]
     Active Substance: AMIFAMPRIDINE
     Dosage: 15 MG, 4X/DAY
     Route: 048
     Dates: start: 20190223, end: 2019
  6. IMMUNOGLOBULIN IV [Suspect]
     Active Substance: HUMAN IMMUNOGLOBULIN G
     Indication: MYASTHENIC SYNDROME
     Dosage: UNK
  7. HIZENTRA [Suspect]
     Active Substance: HUMAN IMMUNOGLOBULIN G
     Indication: MYASTHENIC SYNDROME
     Dosage: 14 G, 1X/WEEK
     Route: 058
     Dates: end: 201908

REACTIONS (5)
  - Product dose omission [Recovered/Resolved]
  - Migraine [Not Recovered/Not Resolved]
  - Exposure during pregnancy [Recovered/Resolved]
  - Meningitis aseptic [Recovered/Resolved]
  - Intentional product use issue [Not Recovered/Not Resolved]

NARRATIVE: CASE EVENT DATE: 201806
